FAERS Safety Report 8697730 (Version 2)
Quarter: 2013Q4

REPORT INFORMATION
  Report Type: Spontaneous
  Country: US (occurrence: US)
  Receive Date: 20120801
  Receipt Date: 20131031
  Transmission Date: 20140711
  Serious: Yes (Other)
  Sender: FDA-Public Use
  Company Number: US-009507513-1207USA012076

PATIENT
  Sex: Male

DRUGS (6)
  1. NASONEX [Suspect]
     Route: 045
  2. ENALAPRIL MALEATE [Suspect]
     Dosage: 1 DF, QD
     Route: 048
  3. NOVORAPID [Concomitant]
  4. TROMBYL [Concomitant]
  5. LANTUS [Concomitant]
  6. SIMVASTATIN [Concomitant]

REACTIONS (12)
  - Skin ulcer [Unknown]
  - Swelling face [Unknown]
  - Auricular swelling [Unknown]
  - Blood glucose decreased [Unknown]
  - Angioedema [Unknown]
  - Eye swelling [Unknown]
  - Pyrexia [Unknown]
  - Malaise [Unknown]
  - Infection [Unknown]
  - Otorrhoea [Unknown]
  - Dandruff [Unknown]
  - Erythema [Unknown]
